FAERS Safety Report 24523771 (Version 1)
Quarter: 2024Q4

REPORT INFORMATION
  Report Type: Spontaneous
  Country: US (occurrence: US)
  Receive Date: 20241018
  Receipt Date: 20241018
  Transmission Date: 20250115
  Serious: No
  Sender: PFIZER
  Company Number: US-PFIZER INC-202400280059

PATIENT
  Age: 52 Year
  Sex: Female

DRUGS (2)
  1. CIBINQO [Suspect]
     Active Substance: ABROCITINIB
     Dosage: 100 MG
     Dates: start: 20240604
  2. CIBINQO [Suspect]
     Active Substance: ABROCITINIB
     Dosage: 200 MG
     Dates: start: 20240723

REACTIONS (1)
  - Therapeutic product effect incomplete [Recovered/Resolved]
